FAERS Safety Report 7666407-4 (Version None)
Quarter: 2011Q3

REPORT INFORMATION
  Report Type: 
  Country: None (occurrence: None)
  Receive Date: 20110806
  Receipt Date: 20110508
  Transmission Date: 20111222
  Serious: No
  Sender: FDA-Public Use
  Company Number: US-ABBOTT-11P-163-0724133-00

PATIENT
  Sex: Female

DRUGS (2)
  1. NIASPAN [Suspect]
     Indication: PRODUCT USED FOR UNKNOWN INDICATION
     Dates: start: 20110508
  2. ASPIRIN [Concomitant]
     Indication: PRODUCT USED FOR UNKNOWN INDICATION
     Dosage: 30 MIN BEFORE NIASPAN

REACTIONS (5)
  - SKIN BURNING SENSATION [None]
  - ERYTHEMA [None]
  - OEDEMA PERIPHERAL [None]
  - OROPHARYNGEAL PAIN [None]
  - FLUSHING [None]
